FAERS Safety Report 26056018 (Version 1)
Quarter: 2025Q4

REPORT INFORMATION
  Report Type: Report from Study
  Country: CA (occurrence: CA)
  Receive Date: 20251118
  Receipt Date: 20251118
  Transmission Date: 20260118
  Serious: Yes (Other)
  Sender: ROCHE
  Company Number: CA-ROCHE-10000433033

PATIENT
  Sex: Male

DRUGS (15)
  1. RITUXAN [Suspect]
     Active Substance: RITUXIMAB
     Indication: Rheumatoid arthritis
     Dosage: MORE DOSAGEINFO IS DAY 1, 15
     Route: 042
     Dates: start: 20101005, end: 20201008
  2. RITUXAN [Suspect]
     Active Substance: RITUXIMAB
     Dosage: MORE DOSAGE INFO IS DAY 1, DAY 15
     Route: 042
     Dates: start: 20220112
  3. ACETAMINOPHEN [Concomitant]
     Active Substance: ACETAMINOPHEN
     Indication: Premedication
     Dosage: DRUG DOSE FIRST ADMINISTERED IS 650 MG MILLIGRAM(S)
     Route: 048
     Dates: start: 20101005
  4. CALCIUM [Concomitant]
     Active Substance: CALCIUM
  5. DILAUDID [Concomitant]
     Active Substance: HYDROMORPHONE HYDROCHLORIDE
  6. DIPHENHYDRAMINE HYDROCHLORIDE [Concomitant]
     Active Substance: DIPHENHYDRAMINE HYDROCHLORIDE
     Indication: Premedication
     Dosage: DRUG DOSE FIRST ADMINISTERED IS 50 MG MILLIGRAM(S)
     Route: 048
     Dates: start: 20101005
  7. IMURAN [Concomitant]
     Active Substance: AZATHIOPRINE
     Dosage: DRUG DOSE FIRST ADMINISTERED IS 100 MG MILLIGRAM(S)
     Route: 048
  8. METHOTREXATE [Concomitant]
     Active Substance: METHOTREXATE
  9. METHYLPREDNISOLONE [Concomitant]
     Active Substance: METHYLPREDNISOLONE
     Indication: Premedication
     Dosage: DRUG DOSE FIRST ADMINISTERED IS 100 MG MILLIGRAM(S)
     Route: 042
     Dates: start: 20101005
  10. PREDNISONE [Concomitant]
     Active Substance: PREDNISONE
  11. SENNOSIDES [Concomitant]
     Active Substance: SENNOSIDES
  12. SIMPONI [Concomitant]
     Active Substance: GOLIMUMAB
     Dosage: DRUG DOSE FIRST ADMINISTERED IS 50 MG MILLIGRAM(S)
     Route: 058
  13. TAMSULOSIN [Concomitant]
     Active Substance: TAMSULOSIN
  14. TYLENOL WITH CODEINE [Concomitant]
     Active Substance: ACETAMINOPHEN\CODEINE PHOSPHATE
  15. WARFARIN [Concomitant]
     Active Substance: WARFARIN
     Dosage: WARFARIN (BLOOD THINNER)

REACTIONS (1)
  - Cardiac disorder [Unknown]
